FAERS Safety Report 5186131-X (Version None)
Quarter: 2006Q4

REPORT INFORMATION
  Report Type: 
  Country: None (occurrence: None)
  Receive Date: 20061220
  Receipt Date: 20061027
  Transmission Date: 20070319
  Serious: No
  Sender: FDA-Public Use
  Company Number: US-GLAXOSMITHKLINE-A0625162A

PATIENT
  Age: 60 Year
  Sex: Female

DRUGS (1)
  1. AMERICAN FARE NTS, 14MG STEP 2 [Suspect]

REACTIONS (3)
  - ARTHRALGIA [None]
  - DIZZINESS [None]
  - INTENTIONAL DRUG MISUSE [None]
